FAERS Safety Report 6852292-7 (Version None)
Quarter: 2010Q3

REPORT INFORMATION
  Report Type: 
  Country: None (occurrence: None)
  Receive Date: 20100717
  Receipt Date: 20071107
  Transmission Date: 20110219
  Serious: No
  Sender: FDA-Public Use
  Company Number: US-PFIZER INC-2007096345

PATIENT
  Sex: Female
  Weight: 75 kg

DRUGS (7)
  1. CHANTIX [Suspect]
     Indication: SMOKING CESSATION THERAPY
     Dates: start: 20071001, end: 20071106
  2. GLIMEPIRIDE [Concomitant]
     Indication: DIABETES MELLITUS
  3. LOVASTATIN [Concomitant]
     Indication: BLOOD CHOLESTEROL
  4. DIOVAN HCT [Concomitant]
     Indication: HYPERTENSION
  5. ACETYLSALICYLIC ACID [Concomitant]
  6. CALCIUM [Concomitant]
  7. ONE-A-DAY [Concomitant]

REACTIONS (1)
  - ABDOMINAL DISCOMFORT [None]
